FAERS Safety Report 9338758 (Version 1)
Quarter: 2013Q2

REPORT INFORMATION
  Report Type: Spontaneous
  Country: US (occurrence: US)
  Receive Date: 20130610
  Receipt Date: 20130610
  Transmission Date: 20140414
  Serious: No
  Sender: FDA-Public Use
  Company Number: US-BAYER-2013-067567

PATIENT
  Sex: Male

DRUGS (15)
  1. MAGNEVIST [Suspect]
     Indication: NUCLEAR MAGNETIC RESONANCE IMAGING BRAIN
     Dosage: 7 ML, UNK
     Route: 042
     Dates: start: 20130530
  2. MAGNEVIST [Suspect]
     Indication: HYPOTHALAMO-PITUITARY DISORDER
  3. TYLENOL [PARACETAMOL] [Concomitant]
  4. ELAVIL [Concomitant]
  5. TUMS E-X [Concomitant]
  6. VITAMIN D [Concomitant]
  7. CELEXA [Concomitant]
  8. FISH OIL [Concomitant]
  9. FOLIC ACID [Concomitant]
  10. MELATONIN [Concomitant]
  11. ZOFRAN [Concomitant]
  12. MIRAPEX [Concomitant]
  13. ZANTAC [Concomitant]
  14. TRAMADOL [Concomitant]
  15. TRAZODONE [Concomitant]

REACTIONS (1)
  - Erythema [None]
